FAERS Safety Report 15321008 (Version 1)
Quarter: 2018Q3

REPORT INFORMATION
  Report Type: Spontaneous
  Country: US (occurrence: US)
  Receive Date: 20180827
  Receipt Date: 20180827
  Transmission Date: 20181010
  Serious: No
  Sender: FDA-Public Use
  Company Number: US-SA-2018SA236595

PATIENT
  Age: 83 Year
  Sex: Female

DRUGS (1)
  1. ALLEGRA ALLERGY [Suspect]
     Active Substance: FEXOFENADINE HYDROCHLORIDE
     Indication: HYPERSENSITIVITY
     Dosage: 180 MG, PRN

REACTIONS (5)
  - Stress [Unknown]
  - Cough [Unknown]
  - Hypertension [Unknown]
  - Nervousness [Unknown]
  - Wrong schedule [Unknown]

NARRATIVE: CASE EVENT DATE: 20180822
